FAERS Safety Report 8100280-5 (Version None)
Quarter: 2012Q1

REPORT INFORMATION
  Report Type: 
  Country: None (occurrence: None)
  Receive Date: 20120129
  Receipt Date: 20111122
  Transmission Date: 20120608
  Serious: No
  Sender: FDA-Public Use
  Company Number: US-ABBOTT-11P-163-0877299-00

PATIENT
  Weight: 104.42 kg

DRUGS (1)
  1. HUMIRA [Suspect]
     Indication: PSORIATIC ARTHROPATHY
     Dates: start: 20100101, end: 20110901

REACTIONS (3)
  - ARTHRITIS [None]
  - EAR INFECTION [None]
  - UPPER RESPIRATORY TRACT INFECTION [None]
